FAERS Safety Report 7304680-2 (Version None)
Quarter: 2011Q1

REPORT INFORMATION
  Report Type: 
  Country: None (occurrence: None)
  Receive Date: 20110222
  Receipt Date: 20110208
  Transmission Date: 20110831
  Serious: Yes (Hospitalization)
  Sender: FDA-Public Use
  Company Number: DE-RANBAXY-2011RR-41833

PATIENT
  Age: 7 Year

DRUGS (1)
  1. CEFACLOR RATIOPHARM 125MG/5ML TS [Suspect]
     Indication: INFECTION

REACTIONS (1)
  - PAIN IN EXTREMITY [None]
